FAERS Safety Report 6403296-X (Version None)
Quarter: 2009Q4

REPORT INFORMATION
  Report Type: 
  Country: None (occurrence: None)
  Receive Date: 20091016
  Receipt Date: 20091007
  Transmission Date: 20100525
  Serious: Yes (Hospitalization, Other)
  Sender: FDA-Public Use
  Company Number: CH-JNJFOC-20090803554

PATIENT
  Sex: Female

DRUGS (2)
  1. REMICADE [Suspect]
     Indication: CROHN'S DISEASE
     Route: 042
  2. IRFEN [Concomitant]
     Dosage: IRFEN ^400^

REACTIONS (3)
  - ASTHENIA [None]
  - GAIT DISTURBANCE [None]
  - MYALGIA [None]
